FAERS Safety Report 16263734 (Version 6)
Quarter: 2020Q3

REPORT INFORMATION
  Report Type: Report from Study
  Country: CA (occurrence: CA)
  Receive Date: 20190502
  Receipt Date: 20190808
  Transmission Date: 20201105
  Serious: Yes (Hospitalization)
  Sender: FDA-Public Use
  Company Number: CA-ROCHE-2308208

PATIENT
  Age: 71 Year
  Sex: Male
  Weight: 61 kg

DRUGS (18)
  1. VENETOCLAX. [Suspect]
     Active Substance: VENETOCLAX
     Indication: ACUTE MYELOID LEUKAEMIA REFRACTORY
     Dosage: MOST RECENT DOSE OF VENETOCLAX ADMINISTERED ON 20/APR/2019 PRIOR TO EVENT ONSET? 600 MG?MOST RECENT
     Route: 048
     Dates: start: 20190408
  2. IDASANUTLIN. [Suspect]
     Active Substance: IDASANUTLIN
     Indication: ACUTE MYELOID LEUKAEMIA REFRACTORY
     Dosage: MOST RECENT DOSE ADMINISTERED ON 14/APR/2019 PRIOR TO EVENT ONSET? 150 MG.
     Route: 048
     Dates: start: 20190408
  3. IMODIUM [Concomitant]
     Active Substance: LOPERAMIDE HYDROCHLORIDE
     Indication: DIARRHOEA
     Dosage: DOSE?UNKNOWN
     Route: 048
     Dates: start: 20190408
  4. STEMETIL [PROCHLORPERAZINE] [Concomitant]
     Route: 048
     Dates: start: 20190408
  5. VIAGRA [Concomitant]
     Active Substance: SILDENAFIL CITRATE
     Indication: ERECTILE DYSFUNCTION
     Route: 048
     Dates: start: 2018
  6. SEVELAMER [Concomitant]
     Active Substance: SEVELAMER
     Indication: TUMOUR LYSIS SYNDROME
     Route: 048
     Dates: start: 20190410, end: 20190424
  7. ATORVASTATIN [Concomitant]
     Active Substance: ATORVASTATIN
     Indication: DYSLIPIDAEMIA
     Route: 048
     Dates: start: 2018, end: 20190330
  8. TRANEXAMIC ACID. [Concomitant]
     Active Substance: TRANEXAMIC ACID
     Route: 048
     Dates: start: 2018
  9. POTASSIUM CHLORIDE. [Concomitant]
     Active Substance: POTASSIUM CHLORIDE
     Indication: HYPOKALAEMIA
     Dosage: 20 UNITS
     Route: 048
     Dates: start: 20190412, end: 20190412
  10. CANESTEN [Concomitant]
     Active Substance: CLOTRIMAZOLE
     Indication: RASH
     Dosage: DOSE: 1; UNIT: OTHER
     Route: 061
     Dates: start: 20190321
  11. NYSTATIN. [Concomitant]
     Active Substance: NYSTATIN
     Indication: ORAL CANDIDIASIS
     Route: 048
     Dates: start: 20190416, end: 20190427
  12. PROCTOSEDYL [CINCHOCAINE HYDROCHLORIDE;ESCULOSIDE;FRAMYCETIN SULFATE;H [Concomitant]
     Indication: HAEMORRHOIDS
     Route: 061
     Dates: start: 20190509, end: 20190516
  13. ACETAMINOPHEN. [Concomitant]
     Active Substance: ACETAMINOPHEN
     Indication: FEBRILE NEUTROPENIA
     Route: 048
     Dates: start: 20190409, end: 20190409
  14. GRANISETRON [Concomitant]
     Active Substance: GRANISETRON
     Route: 048
     Dates: start: 20190414, end: 20190416
  15. POTASSIUM CHLORIDE. [Concomitant]
     Active Substance: POTASSIUM CHLORIDE
     Dosage: DOSE: 20; UNIT: OTHER
     Route: 048
     Dates: start: 20190425, end: 20190425
  16. BICARBONATE [Concomitant]
     Active Substance: SODIUM BICARBONATE
     Indication: TUMOUR LYSIS SYNDROME
     Dosage: DOSE ?150
     Route: 042
     Dates: start: 20190409, end: 20190414
  17. SEPTRA DS [Concomitant]
     Active Substance: SULFAMETHOXAZOLE\TRIMETHOPRIM
     Indication: BLOOD DISORDER PROPHYLAXIS
     Route: 048
     Dates: start: 20190420
  18. AMOXICILLIN;CLAVULANATE POTASSIUM [Concomitant]
     Active Substance: AMOXICILLIN\CLAVULANATE POTASSIUM
     Indication: INFECTION PROPHYLAXIS
     Route: 048
     Dates: start: 20190502, end: 20190504

REACTIONS (2)
  - Hordeolum [Recovered/Resolved]
  - Chalazion [Recovered/Resolved]

NARRATIVE: CASE EVENT DATE: 20190420
